FAERS Safety Report 9722990 (Version 1)
Quarter: 2013Q4

REPORT INFORMATION
  Report Type: Spontaneous
  Country: US (occurrence: None)
  Receive Date: 20131127
  Receipt Date: 20131127
  Transmission Date: 20140711
  Serious: Yes (Disabling)
  Sender: FDA-Public Use
  Company Number: None

PATIENT
  Age: 26 Year
  Sex: Male
  Weight: 86.18 kg

DRUGS (2)
  1. IMIQUIMOD CREAM, 3.75% ( TOLMAR INC.)- RLD ZYCLARA [Suspect]
     Indication: ANOGENITAL WARTS
     Dosage: ONE CREAM PACKET, ONCE DAILY, APPLIED TO A SURFACE, USUALLY THE SKIN
     Dates: start: 20130923, end: 20131123
  2. IMIQUIMOD CREAM, 3.75% ( TOLMAR INC.)- RLD ZYCLARA [Suspect]
     Indication: SKIN PAPILLOMA
     Dosage: ONE CREAM PACKET, ONCE DAILY, APPLIED TO A SURFACE, USUALLY THE SKIN
     Dates: start: 20130923, end: 20131123

REACTIONS (7)
  - Skin irritation [None]
  - Dyspepsia [None]
  - Gastric disorder [None]
  - Back pain [None]
  - Lymph node pain [None]
  - Influenza [None]
  - Sinusitis [None]
